FAERS Safety Report 25261934 (Version 1)
Quarter: 2025Q2

REPORT INFORMATION
  Report Type: Spontaneous
  Country: GB (occurrence: GB)
  Receive Date: 20250502
  Receipt Date: 20250502
  Transmission Date: 20250717
  Serious: Yes (Death)
  Sender: AMGEN
  Company Number: GB-AMGEN-GBRSP2025083415

PATIENT
  Sex: Male

DRUGS (1)
  1. ARANESP [Suspect]
     Active Substance: DARBEPOETIN ALFA
     Indication: Renal disorder
     Dosage: 60 MICROGRAM, Q4WK
     Route: 058

REACTIONS (1)
  - Death [Fatal]
